FAERS Safety Report 7232493-9 (Version None)
Quarter: 2011Q1

REPORT INFORMATION
  Report Type: 
  Country: None (occurrence: None)
  Receive Date: 20110119
  Receipt Date: 20110111
  Transmission Date: 20110831
  Serious: Yes (Hospitalization)
  Sender: FDA-Public Use
  Company Number: US-JNJFOC-20110103046

PATIENT
  Sex: Male

DRUGS (6)
  1. FENTANYL-100 [Suspect]
     Indication: SCIATICA
     Route: 062
  2. GABAPENTIN [Suspect]
     Indication: SCIATICA
     Route: 048
  3. INFLUENZA SHOT [Suspect]
     Indication: PRODUCT USED FOR UNKNOWN INDICATION
     Route: 065
  4. FENTANYL-100 [Suspect]
     Route: 062
  5. FENTANYL-100 [Suspect]
     Indication: SCIATICA
     Route: 062
  6. FENTANYL-100 [Suspect]
     Route: 062

REACTIONS (8)
  - LIMB OPERATION [None]
  - DRUG INEFFECTIVE [None]
  - VOMITING [None]
  - CHILLS [None]
  - APPLICATION SITE RASH [None]
  - IRRITABILITY [None]
  - INADEQUATE ANALGESIA [None]
  - DIARRHOEA [None]
